FAERS Safety Report 7358421-3 (Version None)
Quarter: 2011Q1

REPORT INFORMATION
  Report Type: 
  Country: None (occurrence: None)
  Receive Date: 20110317
  Receipt Date: 20110307
  Transmission Date: 20110831
  Serious: Yes (Other)
  Sender: FDA-Public Use
  Company Number: US-PFIZER INC-2011057922

PATIENT
  Sex: Male

DRUGS (9)
  1. LISINOPRIL [Suspect]
     Route: 048
  2. PRILOSEC [Suspect]
     Route: 048
  3. TAMSULOSIN HYDROCHLORIDE [Suspect]
  4. ASPIRIN [Suspect]
  5. COREG [Suspect]
  6. LIPITOR [Suspect]
  7. HYDROCHLOROTHIAZIDE [Suspect]
     Dosage: 12.5 MG, CAPSULE
     Route: 048
  8. TYLENOL-500 [Suspect]
  9. AVODART [Suspect]
     Indication: BENIGN PROSTATIC HYPERPLASIA
     Dosage: 1 CAPSULE WEEKLY
     Route: 048

REACTIONS (3)
  - SYNCOPE [None]
  - DIZZINESS [None]
  - INAPPROPRIATE SCHEDULE OF DRUG ADMINISTRATION [None]
